FAERS Safety Report 8439910-7 (Version None)
Quarter: 2012Q2

REPORT INFORMATION
  Report Type: 
  Country: None (occurrence: None)
  Receive Date: 20120615
  Receipt Date: 20120611
  Transmission Date: 20120825
  Serious: Yes (Hospitalization, Other)
  Sender: FDA-Public Use
  Company Number: US-AMGEN-USASP2012021645

PATIENT
  Age: 46 Year
  Sex: Female

DRUGS (1)
  1. ENBREL [Suspect]
     Indication: RHEUMATOID ARTHRITIS
     Dosage: 50 MG, QWK
     Dates: start: 20110201

REACTIONS (12)
  - UTERINE LEIOMYOMA [None]
  - RHINORRHOEA [None]
  - DIARRHOEA [None]
  - PAIN [None]
  - SNEEZING [None]
  - PYREXIA [None]
  - INJECTION SITE PAIN [None]
  - ASTHENIA [None]
  - ANXIETY [None]
  - UTERINE HAEMORRHAGE [None]
  - CYST [None]
  - OCULAR HYPERAEMIA [None]
